FAERS Safety Report 23734136 (Version 1)
Quarter: 2024Q2

REPORT INFORMATION
  Report Type: Spontaneous
  Country: US (occurrence: US)
  Receive Date: 20240412
  Receipt Date: 20240412
  Transmission Date: 20240716
  Serious: Yes (Other)
  Sender: FDA-Public Use
  Company Number: US-BRISTOL-MYERS SQUIBB COMPANY-2024-056435

PATIENT
  Age: 81 Year
  Sex: Male
  Weight: 95.7 kg

DRUGS (5)
  1. ELIQUIS [Suspect]
     Active Substance: APIXABAN
     Indication: Product used for unknown indication
     Dosage: TAKE 2 TABLETS (10 MG TOTAL) BY MOUTH 2 (TWO) TIMES A DAY FOR 7 DAYS, THEN 1 TABLET (5 MG TOTAL) 2 (
     Route: 048
  2. ELIQUIS [Suspect]
     Active Substance: APIXABAN
     Dosage: TAKE 2 TABLETS (10 MG TOTAL) BY MOUTH 2 (TWO) TIMES A DAY FOR 7 DAYS, THEN 1 TABLET (5 MG TOTAL) 2 (
     Route: 048
  3. IBRANCE [Suspect]
     Active Substance: PALBOCICLIB
     Indication: Liposarcoma
     Dosage: TAKE 1 TABLET (75 MG TOTAL) BY MOUTH DAILY. TAKE DAILY THREE WEEKS ON, ONE WEEK OFF
     Route: 048
     Dates: start: 20240327
  4. IBRANCE [Suspect]
     Active Substance: PALBOCICLIB
     Dosage: TAKE 1 TABLET (100 MG TOTAL) BY MOUTH DAILY. TAKE 100 MG PO Q DAY X21 DAYS FOLLOWED BY 7 DAYS OFF.
     Route: 048
     Dates: start: 20230928
  5. IBRANCE [Suspect]
     Active Substance: PALBOCICLIB
     Dates: start: 20230310

REACTIONS (3)
  - Anaemia [Unknown]
  - Gastrointestinal haemorrhage [Unknown]
  - Full blood count decreased [Unknown]
